FAERS Safety Report 6368422-X (Version None)
Quarter: 2009Q4

REPORT INFORMATION
  Report Type: 
  Country: None (occurrence: None)
  Receive Date: 20090831
  Receipt Date: 20090316
  Transmission Date: 20100525
  Serious: Yes (Other)
  Sender: FDA-Public Use
  Company Number: 188223USA

PATIENT
  Age: 25 Year
  Sex: Female
  Weight: 65.7716 kg

DRUGS (1)
  1. PLAN B [Suspect]
     Indication: POST COITAL CONTRACEPTION
     Dosage: 1 TABLET EVERY 12 HOURS (0.75 MG, 2 IN 1 D), ORAL
     Route: 048
     Dates: start: 20090308, end: 20090308

REACTIONS (8)
  - FEELING HOT [None]
  - IRRITABILITY [None]
  - MALAISE [None]
  - MENSTRUATION IRREGULAR [None]
  - MOOD ALTERED [None]
  - NAUSEA [None]
  - PREMENSTRUAL SYNDROME [None]
  - VAGINAL HAEMORRHAGE [None]
